FAERS Safety Report 7051195-5 (Version None)
Quarter: 2010Q4

REPORT INFORMATION
  Report Type: 
  Country: None (occurrence: None)
  Receive Date: 20101014
  Receipt Date: 20100928
  Transmission Date: 20110411
  Serious: Yes (Other)
  Sender: FDA-Public Use
  Company Number: ACO_02422_2010

PATIENT
  Sex: Female
  Weight: 61.2356 kg

DRUGS (4)
  1. AMPYRA [Suspect]
     Indication: GAIT DISTURBANCE
     Dosage: 10 MG QD ORAL
     Route: 048
     Dates: start: 20100924
  2. BACLOFEN [Concomitant]
  3. NIFEDIPINE [Concomitant]
  4. LORAZEPAM [Concomitant]

REACTIONS (5)
  - ASTHENIA [None]
  - DEPRESSION [None]
  - INSOMNIA [None]
  - SEDATION [None]
  - VISION BLURRED [None]
